FAERS Safety Report 8380239-3 (Version None)
Quarter: 2012Q2

REPORT INFORMATION
  Report Type: 
  Country: None (occurrence: None)
  Receive Date: 20120523
  Receipt Date: 20120516
  Transmission Date: 20120825
  Serious: Yes (Hospitalization)
  Sender: FDA-Public Use
  Company Number: PHHO2011FR09721

PATIENT
  Sex: Male
  Weight: 79 kg

DRUGS (14)
  1. ZORTRESS [Suspect]
     Indication: RENAL TRANSPLANT
     Dosage: 4 MG, QD
     Route: 048
     Dates: start: 20110228, end: 20110411
  2. CELLCEPT [Concomitant]
     Indication: RENAL TRANSPLANT
     Dosage: 1 G, QD
     Route: 048
     Dates: start: 20110224
  3. VALGANCICLOVIR [Concomitant]
  4. PROGRAF [Concomitant]
     Indication: RENAL TRANSPLANT
     Dosage: 2 MG, BID
     Route: 048
     Dates: start: 20110414
  5. ZORTRESS [Suspect]
     Dosage: 4 MG, QD
     Route: 048
     Dates: start: 20110516, end: 20110614
  6. BACTRIM DS [Concomitant]
  7. BISOPROLOL FUMARATE [Concomitant]
  8. OFLOXACIN [Concomitant]
  9. TAMSULOSIN HCL [Concomitant]
  10. PREDNISONE TAB [Concomitant]
     Indication: RENAL TRANSPLANT
     Dosage: 5 MG, QD
     Route: 048
     Dates: start: 20110226, end: 20110926
  11. ESOMEPRAZOLE MAGNESIUM [Concomitant]
  12. CALCIPARINE [Concomitant]
  13. PENTOXIFYLLINE [Concomitant]
  14. ALFUZOSIN HCL [Concomitant]

REACTIONS (6)
  - CYSTOGRAM ABNORMAL [None]
  - HYDRONEPHROSIS [None]
  - RENAL FAILURE ACUTE [None]
  - URETERIC ANASTOMOSIS COMPLICATION [None]
  - LYMPHOCELE [None]
  - HYPERKALAEMIA [None]
